FAERS Safety Report 19792435 (Version 1)
Quarter: 2021Q3

REPORT INFORMATION
  Report Type: Report from Study
  Country: CA (occurrence: CA)
  Receive Date: 20210906
  Receipt Date: 20210906
  Transmission Date: 20211014
  Serious: Yes (Other)
  Sender: FDA-Public Use
  Company Number: CA-ASTRAZENECA-2021A709494

PATIENT
  Age: 723 Month
  Sex: Male

DRUGS (10)
  1. LAMIVUDINE. [Concomitant]
     Active Substance: LAMIVUDINE
     Route: 065
     Dates: start: 202102, end: 202108
  2. DAPSONE. [Concomitant]
     Active Substance: DAPSONE
     Dosage: UNKNOWN
     Route: 065
  3. SPIRIVA [Concomitant]
     Active Substance: TIOTROPIUM BROMIDE MONOHYDRATE
     Dosage: UNKNOWN
     Route: 065
  4. PREDNISONE. [Concomitant]
     Active Substance: PREDNISONE
     Dosage: 25.0MG UNKNOWN
     Route: 065
  5. DOXCYCLINE [Concomitant]
     Route: 065
  6. RIXIMYO [Concomitant]
     Active Substance: RITUXIMAB
     Dosage: 500.0MG UNKNOWN
     Route: 065
  7. FASENRA [Suspect]
     Active Substance: BENRALIZUMAB
     Indication: ASTHMA
     Dosage: 30.0MG UNKNOWN
     Route: 058
     Dates: start: 20210610
  8. TEVA SALBUTAMOL [Concomitant]
     Active Substance: ALBUTEROL
     Dosage: UNKNOWN
     Route: 065
  9. ALVESCO [Concomitant]
     Active Substance: CICLESONIDE
     Dosage: UNKNOWN
     Route: 065
  10. ADVAIR HFA [Concomitant]
     Active Substance: FLUTICASONE PROPIONATE\SALMETEROL XINAFOATE
     Dosage: UNKNOWN
     Route: 065

REACTIONS (7)
  - Dermatitis bullous [Unknown]
  - Hypersensitivity [Unknown]
  - Peripheral swelling [Unknown]
  - Erythema [Unknown]
  - Blister [Unknown]
  - Wound [Unknown]
  - Hepatitis B [Recovered/Resolved]

NARRATIVE: CASE EVENT DATE: 202008
